FAERS Safety Report 4514387-2 (Version None)
Quarter: 2004Q4

REPORT INFORMATION
  Report Type: 
  Country: None (occurrence: None)
  Receive Date: 20041130
  Receipt Date: 20041122
  Transmission Date: 20050328
  Serious: Yes (Life-Threatening, Hospitalization, Disabling)
  Sender: FDA-Public Use
  Company Number: US-MERCK-0411USA03543

PATIENT
  Age: 42 Year
  Sex: Female

DRUGS (5)
  1. VIOXX [Suspect]
     Indication: ARTHRITIS
     Route: 048
     Dates: start: 19990921, end: 20011001
  2. SYNTHROID [Concomitant]
     Route: 065
  3. ZYRTEC [Concomitant]
     Route: 065
  4. ESTRATEST [Concomitant]
     Route: 065
  5. ZOLOFT [Concomitant]
     Route: 065

REACTIONS (1)
  - VENTRICULAR EXTRASYSTOLES [None]
